FAERS Safety Report 14723670 (Version 1)
Quarter: 2018Q2

REPORT INFORMATION
  Report Type: Spontaneous
  Country: CN (occurrence: CN)
  Receive Date: 20180405
  Receipt Date: 20180405
  Transmission Date: 20180711
  Serious: Yes (Hospitalization)
  Sender: FDA-Public Use
  Company Number: CN-ASTRAZENECA-2018SE29101

PATIENT
  Age: 61 Year
  Sex: Female

DRUGS (4)
  1. SYMBICORT [Suspect]
     Active Substance: BUDESONIDE\FORMOTEROL FUMARATE DIHYDRATE
     Indication: EMPHYSEMA
     Dosage: SYMBICORT (STRENGTH:160UG) ONE INHALATION BID
     Route: 055
     Dates: end: 20180302
  2. NIFEDIPINE. [Concomitant]
     Active Substance: NIFEDIPINE
     Route: 048
  3. CEFDINIR. [Concomitant]
     Active Substance: CEFDINIR
  4. DOXOFYLLINE [Concomitant]
     Active Substance: DOXOFYLLINE

REACTIONS (6)
  - Pneumonitis [Unknown]
  - Off label use [Unknown]
  - Cardiac discomfort [Unknown]
  - Product use issue [Unknown]
  - Pulmonary mass [Unknown]
  - Pulmonary oedema [Unknown]
